FAERS Safety Report 8789710 (Version 1)
Quarter: 2012Q4

REPORT INFORMATION
  Report Type: Spontaneous
  Country: US (occurrence: None)
  Receive Date: 20120906
  Receipt Date: 20120906
  Transmission Date: 20130627
  Serious: Yes (Other)
  Sender: FDA-Public Use
  Company Number: 2012MA010641

PATIENT
  Age: 78 Year
  Sex: Male

DRUGS (12)
  1. METOCLOPRAMIDE [Suspect]
     Dates: start: 20120731
  2. MOMETASONE [Concomitant]
  3. SIMVASTATIN [Concomitant]
  4. OXYBUTYNIN [Concomitant]
  5. ISPAGHULA HUSK [Concomitant]
  6. PEPPERMINT OIL [Concomitant]
  7. SULFASALAZINE [Concomitant]
  8. TAMSULOSIN [Concomitant]
  9. FINASTERIDE [Concomitant]
  10. FLUDROCORTISONE [Concomitant]
  11. CYCLIZINE [Concomitant]
  12. ACE INHIBITOR [Concomitant]

REACTIONS (1)
  - Dysuria [None]
